FAERS Safety Report 8216313-1 (Version None)
Quarter: 2012Q1

REPORT INFORMATION
  Report Type: 
  Country: None (occurrence: None)
  Receive Date: 20120316
  Receipt Date: 20120309
  Transmission Date: 20120608
  Serious: Yes (Other)
  Sender: FDA-Public Use
  Company Number: PHHY2012JP017591

PATIENT
  Age: 50 Year
  Sex: Female

DRUGS (4)
  1. TS 1 [Concomitant]
     Route: 048
  2. DOCETAXEL [Concomitant]
  3. ZOLEDRONOC ACID [Suspect]
     Indication: METASTASES TO BONE
     Dosage: UNK UKN, UNK
     Route: 041
     Dates: start: 20090201
  4. CISPLATIN [Concomitant]

REACTIONS (11)
  - BONE MARROW FAILURE [None]
  - BLOOD LACTATE DEHYDROGENASE INCREASED [None]
  - RED BLOOD CELL ABNORMALITY [None]
  - ANGIOPATHY [None]
  - THROMBOCYTOPENIA [None]
  - DISSEMINATED INTRAVASCULAR COAGULATION [None]
  - HAPTOGLOBIN DECREASED [None]
  - MICROANGIOPATHIC HAEMOLYTIC ANAEMIA [None]
  - RETICULOCYTE COUNT INCREASED [None]
  - SIGNET-RING CELL CARCINOMA [None]
  - BLOOD BILIRUBIN UNCONJUGATED INCREASED [None]
